FAERS Safety Report 6705359-8 (Version None)
Quarter: 2010Q2

REPORT INFORMATION
  Report Type: 
  Country: None (occurrence: None)
  Receive Date: 20100503
  Receipt Date: 20100423
  Transmission Date: 20101027
  Serious: Yes (Death)
  Sender: FDA-Public Use
  Company Number: CZ-RB-001318-10

PATIENT
  Sex: Male

DRUGS (3)
  1. SUBUTEX [Suspect]
     Dosage: DOSING DETAILS UNKNOWN
     Route: 048
     Dates: end: 20100101
  2. ALCOHOL [Suspect]
     Indication: DRUG USE FOR UNKNOWN INDICATION
     Dosage: DOSING DETAILS UNKNOWN
     Route: 065
  3. HEROIN [Suspect]
     Indication: DRUG USE FOR UNKNOWN INDICATION
     Dosage: UNKNOWN DOSING DETAILS
     Route: 065

REACTIONS (4)
  - ACCIDENTAL OVERDOSE [None]
  - DEATH [None]
  - INCORRECT ROUTE OF DRUG ADMINISTRATION [None]
  - SUBSTANCE ABUSE [None]
